FAERS Safety Report 5597659-2 (Version None)
Quarter: 2008Q1

REPORT INFORMATION
  Report Type: 
  Country: None (occurrence: None)
  Receive Date: 20080110
  Receipt Date: 20080111
  Transmission Date: 20080703
  Serious: Yes (Hospitalization)
  Sender: FDA-Public Use
  Company Number: 2007SP008828

PATIENT
  Age: 47 Year
  Sex: Female

DRUGS (1)
  1. TEMODAL [Suspect]
     Indication: PITUITARY TUMOUR BENIGN
     Dosage: ; PO
     Route: 048
     Dates: start: 20061201, end: 20070501

REACTIONS (2)
  - GLOMERULONEPHRITIS [None]
  - NEPHROTIC SYNDROME [None]
